FAERS Safety Report 25564005 (Version 1)
Quarter: 2025Q3

REPORT INFORMATION
  Report Type: Spontaneous
  Country: GB (occurrence: GB)
  Receive Date: 20250716
  Receipt Date: 20250716
  Transmission Date: 20251020
  Serious: Yes (Hospitalization, Other)
  Sender: ALEXION PHARMACEUTICALS
  Company Number: GB-MHRA-EMIS-11548-99216f2d-9b7e-4a4a-9268-c06cce03354b

PATIENT
  Age: 54 Year
  Sex: Male
  Weight: 76 kg

DRUGS (8)
  1. DAPAGLIFLOZIN [Suspect]
     Active Substance: DAPAGLIFLOZIN
     Dosage: UNK, QD
     Route: 065
     Dates: start: 20220207, end: 20250304
  2. MORPHINE SULFATE [Concomitant]
     Active Substance: MORPHINE SULFATE
     Route: 065
     Dates: start: 20250411, end: 20250628
  3. HYDROXOCOBALAMIN [Concomitant]
     Active Substance: HYDROXOCOBALAMIN
     Route: 065
     Dates: start: 20250506, end: 20250618
  4. AMOXICILLIN [Concomitant]
     Active Substance: AMOXICILLIN
     Route: 065
     Dates: start: 20250516, end: 20250614
  5. PREDNISOLONE [Concomitant]
     Active Substance: PREDNISOLONE
     Route: 065
     Dates: start: 20250516, end: 20250621
  6. DOXYCYCLINE [Concomitant]
     Active Substance: DOXYCYCLINE
     Route: 065
  7. AMOXICILLIN\CLAVULANATE POTASSIUM [Concomitant]
     Active Substance: AMOXICILLIN\CLAVULANATE POTASSIUM
     Route: 065
     Dates: start: 20250523, end: 20250621
  8. Aymes shake [Concomitant]
     Dosage: UNK, QD
     Route: 065
     Dates: start: 20250617

REACTIONS (2)
  - Fournier^s gangrene [Recovered/Resolved with Sequelae]
  - Septic shock [Unknown]

NARRATIVE: CASE EVENT DATE: 20250210
